FAERS Safety Report 7551322-7 (Version None)
Quarter: 2011Q2

REPORT INFORMATION
  Report Type: 
  Country: None (occurrence: None)
  Receive Date: 20110616
  Receipt Date: 20110613
  Transmission Date: 20111010
  Serious: Yes (Other)
  Sender: FDA-Public Use
  Company Number: JP-PFIZER INC-2011128237

PATIENT
  Age: 7 Month
  Sex: Male

DRUGS (3)
  1. ATARAX [Suspect]
  2. CELTECT [Concomitant]
     Dosage: UNK
  3. RIZABEN [Concomitant]
     Dosage: UNK

REACTIONS (4)
  - LIVER DISORDER [None]
  - WEIGHT DECREASED [None]
  - FEEDING DISORDER NEONATAL [None]
  - SOMNOLENCE [None]
